FAERS Safety Report 20411222 (Version 2)
Quarter: 2022Q1

REPORT INFORMATION
  Report Type: Spontaneous
  Country: US (occurrence: US)
  Receive Date: 20220201
  Receipt Date: 20220202
  Transmission Date: 20220423
  Serious: No
  Sender: FDA-Public Use
  Company Number: US-ELI_LILLY_AND_COMPANY-US202202000100

PATIENT
  Age: 63 Year
  Sex: Female

DRUGS (9)
  1. HUMALOG KWIKPEN [Suspect]
     Active Substance: INSULIN LISPRO
     Indication: Diabetes mellitus
     Dosage: 12 U, (BEFORE EACH MEALS WITH SLIDING SCALE, RARELY TAKES MORE THAN 36 U)
     Route: 058
     Dates: start: 2020
  2. HUMALOG KWIKPEN [Suspect]
     Active Substance: INSULIN LISPRO
     Indication: Diabetes mellitus
     Dosage: 12 U, (BEFORE EACH MEALS WITH SLIDING SCALE, RARELY TAKES MORE THAN 36 U)
     Route: 058
     Dates: start: 2020
  3. HUMALOG KWIKPEN [Suspect]
     Active Substance: INSULIN LISPRO
     Dosage: 12 U, (BEFORE EACH MEALS WITH SLIDING SCALE,  RARELY TAKES MORE THAN 36 U))
     Route: 058
     Dates: start: 2020
  4. HUMALOG KWIKPEN [Suspect]
     Active Substance: INSULIN LISPRO
     Dosage: 12 U, (BEFORE EACH MEALS WITH SLIDING SCALE,  RARELY TAKES MORE THAN 36 U))
     Route: 058
     Dates: start: 2020
  5. BASAGLAR [Suspect]
     Active Substance: INSULIN GLARGINE
     Indication: Diabetes mellitus
     Dosage: 36 U, DAILY
     Route: 058
     Dates: start: 2020
  6. BASAGLAR [Suspect]
     Active Substance: INSULIN GLARGINE
     Indication: Diabetes mellitus
     Dosage: 36 U, DAILY
     Route: 058
     Dates: start: 2020
  7. BASAGLAR [Suspect]
     Active Substance: INSULIN GLARGINE
     Dosage: 36 U, DAILY
     Route: 058
     Dates: start: 2020
  8. BASAGLAR [Suspect]
     Active Substance: INSULIN GLARGINE
     Dosage: 36 U, DAILY
     Route: 058
     Dates: start: 2020
  9. LISINOPRIL [Concomitant]
     Active Substance: LISINOPRIL
     Indication: Blood pressure increased

REACTIONS (2)
  - Blood glucose increased [Unknown]
  - Mydriasis [Recovered/Resolved]

NARRATIVE: CASE EVENT DATE: 20220201
